FAERS Safety Report 20653747 (Version 1)
Quarter: 2022Q1

REPORT INFORMATION
  Report Type: Spontaneous
  Country: US (occurrence: None)
  Receive Date: 20220329
  Receipt Date: 20220329
  Transmission Date: 20220424
  Serious: Yes (Life-Threatening, Hospitalization, Disabling)
  Sender: FDA-Public Use
  Company Number: None

PATIENT
  Age: 57 Year
  Sex: Female
  Weight: 60.75 kg

DRUGS (6)
  1. LUPRON [Suspect]
     Active Substance: LEUPROLIDE ACETATE
     Indication: Product used for unknown indication
     Dates: start: 20191106, end: 20191106
  2. VITAMIN D [Concomitant]
     Active Substance: VITAMIN D NOS
  3. PROBIOTICS NOS [Concomitant]
     Active Substance: PROBIOTICS NOS
  4. Apple Cider Vinegar Capsules [Concomitant]
  5. HERBALS\TURMERIC [Concomitant]
     Active Substance: HERBALS\TURMERIC
  6. Protein Powder [Concomitant]

REACTIONS (8)
  - Myalgia [None]
  - Bone pain [None]
  - Arthralgia [None]
  - Arthritis [None]
  - Dyspnoea [None]
  - Dizziness [None]
  - Anxiety [None]
  - Impaired driving ability [None]

NARRATIVE: CASE EVENT DATE: 20191106
